FAERS Safety Report 7678189-0 (Version None)
Quarter: 2011Q3

REPORT INFORMATION
  Report Type: 
  Country: None (occurrence: None)
  Receive Date: 20110811
  Receipt Date: 20100115
  Transmission Date: 20111222
  Serious: Yes (Disabling, Other)
  Sender: FDA-Public Use
  Company Number: US-BAYER-200927554NA

PATIENT
  Sex: Female

DRUGS (7)
  1. PROHANCE [Suspect]
     Indication: PRODUCT USED FOR UNKNOWN INDICATION
  2. GADOLINIUM IN UNSPECIFIED DRUG [Suspect]
     Dosage: UNK, ONCE
     Dates: start: 20061122, end: 20061122
  3. MULTIHANCE [Suspect]
     Indication: PRODUCT USED FOR UNKNOWN INDICATION
     Dates: start: 20061101, end: 20061101
  4. MAGNEVIST [Suspect]
     Indication: PRODUCT USED FOR UNKNOWN INDICATION
  5. OPTIMARK [Suspect]
     Indication: PRODUCT USED FOR UNKNOWN INDICATION
  6. OMNISCAN [Suspect]
     Indication: PRODUCT USED FOR UNKNOWN INDICATION
     Route: 042
     Dates: start: 20050821, end: 20050821
  7. GADOLINIUM IN UNSPECIFIED DRUG [Suspect]
     Indication: NUCLEAR MAGNETIC RESONANCE IMAGING
     Dosage: UNK UNK, ONCE
     Dates: start: 20051109, end: 20051109

REACTIONS (8)
  - NEPHROGENIC SYSTEMIC FIBROSIS [None]
  - FIBROSIS [None]
  - ABASIA [None]
  - PAIN [None]
  - JOINT CONTRACTURE [None]
  - GENERAL PHYSICAL HEALTH DETERIORATION [None]
  - SCAR [None]
  - DEPRESSION [None]
